FAERS Safety Report 7974821-2 (Version None)
Quarter: 2011Q4

REPORT INFORMATION
  Report Type: 
  Country: None (occurrence: None)
  Receive Date: 20111213
  Receipt Date: 20111125
  Transmission Date: 20120403
  Serious: Yes (Hospitalization)
  Sender: FDA-Public Use
  Company Number: US-AMGEN-USACT2011058805

PATIENT
  Age: 67 Year
  Sex: Male

DRUGS (24)
  1. IMDUR [Concomitant]
     Dosage: 60 MG, UNK
  2. KEPPRA [Concomitant]
     Dosage: 750 MG, BID
  3. PROCRIT [Concomitant]
     Dosage: 20000 UNIT, QWK
     Route: 058
  4. LASIX [Concomitant]
     Dosage: 20 MG, UNK
  5. NEURONTIN [Concomitant]
     Dosage: 100 MG, TID
  6. HYDROCHLOROTHIAZIDE [Concomitant]
     Dosage: 25 MG, UNK
  7. VITAMIN D [Concomitant]
     Dosage: 1000 UNIT, BID
  8. JANUVIA [Concomitant]
     Dosage: 50 MG, UNK
  9. PRILOSEC [Concomitant]
     Dosage: 40 MG, UNK
  10. BLINDED DARBEPOETIN ALFA [Suspect]
     Indication: CARDIAC FAILURE
     Dates: start: 20110427
  11. BLINDED DARBEPOETIN ALFA [Suspect]
     Dates: start: 20110427
  12. COREG [Concomitant]
     Dosage: 12.5 MG, UNK
  13. FERROUS SULFATE TAB [Concomitant]
     Dosage: 325 MG, UNK
  14. SINGULAIR [Concomitant]
     Dosage: 10 MG, UNK
  15. ZOCOR [Concomitant]
     Dosage: 80 MG, UNK
  16. COLACE [Concomitant]
     Dosage: 100 MG, BID
  17. TRAMADOL HCL [Concomitant]
     Dosage: 100 MG, UNK
  18. HYDRALAZINE HCL [Concomitant]
     Dosage: 50 MG, TID
  19. VICODIN [Concomitant]
  20. CELEXA [Concomitant]
     Dosage: 20 MG, UNK
  21. PLACEBO [Suspect]
     Indication: CARDIAC FAILURE
     Dates: start: 20110427
  22. GLUCOTROL [Concomitant]
     Dosage: 5 MG, UNK
  23. ASPIRIN [Concomitant]
     Dosage: 81 MG, UNK
  24. CLONIDINE [Concomitant]
     Dosage: 0.1 MG, UNK

REACTIONS (4)
  - UROSEPSIS [None]
  - CARDIAC FAILURE CONGESTIVE [None]
  - URINARY TRACT INFECTION [None]
  - RENAL FAILURE CHRONIC [None]
